FAERS Safety Report 8495778-4 (Version None)
Quarter: 2012Q2

REPORT INFORMATION
  Report Type: 
  Country: None (occurrence: None)
  Receive Date: 20120629
  Receipt Date: 20120615
  Transmission Date: 20120825
  Serious: Yes (Disabling)
  Sender: FDA-Public Use
  Company Number: 2012S1000701

PATIENT
  Age: 69 Year
  Sex: Female

DRUGS (3)
  1. . [Concomitant]
  2. PNEUMOCOCCAL VACCINE [Concomitant]
  3. LIVALO [Suspect]
     Indication: BLOOD CHOLESTEROL ABNORMAL
     Dosage: ; PO
     Route: 048
     Dates: start: 20111128, end: 20111228

REACTIONS (17)
  - HYPOPNOEA [None]
  - FATIGUE [None]
  - ASTHMA [None]
  - BACK PAIN [None]
  - PAIN IN EXTREMITY [None]
  - ASTHENIA [None]
  - DYSPNOEA [None]
  - HEADACHE [None]
  - CHEST X-RAY ABNORMAL [None]
  - PLEURAL EFFUSION [None]
  - ANXIETY [None]
  - ORAL DISORDER [None]
  - FEELING ABNORMAL [None]
  - CONSTIPATION [None]
  - PNEUMONIA [None]
  - BLOOD PRESSURE INCREASED [None]
  - CHEST PAIN [None]
